FAERS Safety Report 12241265 (Version 1)
Quarter: 2016Q2

REPORT INFORMATION
  Report Type: Spontaneous
  Country: US (occurrence: None)
  Receive Date: 20160405
  Receipt Date: 20160405
  Transmission Date: 20160815
  Serious: No
  Sender: FDA-Public Use
  Company Number: None

PATIENT
  Age: 73 Year
  Sex: Female

DRUGS (1)
  1. IMATINIB 400 MG RANXBURY [Suspect]
     Active Substance: IMATINIB
     Indication: NEOPLASM
     Route: 048
     Dates: start: 20160212

REACTIONS (4)
  - Chest discomfort [None]
  - Swelling [None]
  - Pain [None]
  - Product substitution issue [None]
